FAERS Safety Report 14899773 (Version 2)
Quarter: 2018Q3

REPORT INFORMATION
  Report Type: Report from Study
  Country: US (occurrence: US)
  Receive Date: 20180516
  Receipt Date: 20180822
  Transmission Date: 20181010
  Serious: No
  Sender: FDA-Public Use
  Company Number: PHEH2018US018835

PATIENT
  Sex: Male

DRUGS (2)
  1. FAMOTIDINE. [Concomitant]
     Active Substance: FAMOTIDINE
     Indication: PRODUCT USED FOR UNKNOWN INDICATION
     Route: 065
  2. VOTRIENT [Suspect]
     Active Substance: PAZOPANIB HYDROCHLORIDE
     Indication: NEOPLASM MALIGNANT
     Dosage: 3 DF, QD (TAKE 3 TABLETS 600 MG BY MOUTH ONCE DAILY)
     Route: 048
     Dates: start: 20180516

REACTIONS (4)
  - Decreased appetite [Unknown]
  - Dysgeusia [Unknown]
  - Pain [Unknown]
  - Arthritis [Unknown]
